FAERS Safety Report 10227614 (Version 1)
Quarter: 2014Q2

REPORT INFORMATION
  Report Type: Spontaneous
  Country: US (occurrence: None)
  Receive Date: 20140609
  Receipt Date: 20140609
  Transmission Date: 20141212
  Serious: No
  Sender: FDA-Public Use
  Company Number: None

PATIENT
  Sex: Female

DRUGS (1)
  1. FOCALIN XR [Suspect]
     Dosage: 30 MG 1 PO QAM
     Route: 048

REACTIONS (10)
  - Palpitations [None]
  - Tic [None]
  - Vision blurred [None]
  - Dizziness [None]
  - Insomnia [None]
  - Asthenia [None]
  - Restlessness [None]
  - Rash [None]
  - Adverse drug reaction [None]
  - Unevaluable event [None]
